FAERS Safety Report 24616886 (Version 1)
Quarter: 2024Q4

REPORT INFORMATION
  Report Type: Spontaneous
  Country: US (occurrence: US)
  Receive Date: 20241114
  Receipt Date: 20241114
  Transmission Date: 20250115
  Serious: No
  Sender: OTSUKA
  Company Number: US-OTSUKA-2024_012001

PATIENT
  Sex: Female
  Weight: 91.63 kg

DRUGS (2)
  1. NUEDEXTA [Suspect]
     Active Substance: DEXTROMETHORPHAN HYDROBROMIDE\QUINIDINE SULFATE
     Indication: Major depression
     Dosage: 1 DF (20-10 MG), BID
     Route: 065
     Dates: start: 2010
  2. NUEDEXTA [Suspect]
     Active Substance: DEXTROMETHORPHAN HYDROBROMIDE\QUINIDINE SULFATE
     Indication: Depression

REACTIONS (3)
  - Malaise [Not Recovered/Not Resolved]
  - Drug effective for unapproved indication [Unknown]
  - Therapy interrupted [Not Recovered/Not Resolved]

NARRATIVE: CASE EVENT DATE: 20100101
